FAERS Safety Report 6174144-0 (Version None)
Quarter: 2009Q2

REPORT INFORMATION
  Report Type: 
  Country: None (occurrence: None)
  Receive Date: 20090430
  Receipt Date: 20090421
  Transmission Date: 20091009
  Serious: Yes (Other)
  Sender: FDA-Public Use
  Company Number: US-WYE-H09050509

PATIENT
  Age: 50 Year
  Sex: Female
  Weight: 72.64 kg

DRUGS (3)
  1. EFFEXOR XR [Suspect]
     Indication: PANIC ATTACK
     Route: 048
     Dates: start: 20080101
  2. EFFEXOR XR [Suspect]
     Dosage: TOOK DOSES AS HIGH AS 300 MG
     Route: 048
     Dates: start: 19940101, end: 20050101
  3. EFFEXOR XR [Suspect]
     Dosage: PATIENT DECREASED THE DOSE AND INTERVAL SLOWLY
     Route: 048
     Dates: start: 20050101, end: 20080101

REACTIONS (8)
  - BLOOD CHOLESTEROL INCREASED [None]
  - CONDITION AGGRAVATED [None]
  - DRUG DEPENDENCE [None]
  - DRUG WITHDRAWAL SYNDROME [None]
  - FRACTURE [None]
  - PANIC ATTACK [None]
  - UNEVALUABLE EVENT [None]
  - WEIGHT INCREASED [None]
